FAERS Safety Report 15007306 (Version 2)
Quarter: 2018Q2

REPORT INFORMATION
  Report Type: Spontaneous
  Country: US (occurrence: US)
  Receive Date: 20180613
  Receipt Date: 20180618
  Transmission Date: 20180711
  Serious: Yes (Other)
  Sender: FDA-Public Use
  Company Number: US-IPSEN BIOPHARMACEUTICALS, INC.-2018-08063

PATIENT
  Age: 59 Year
  Sex: Male
  Weight: 81.64 kg

DRUGS (10)
  1. CIALIS [Concomitant]
     Active Substance: TADALAFIL
     Route: 048
     Dates: start: 20170220
  2. LISINOPRIL. [Concomitant]
     Active Substance: LISINOPRIL
     Route: 048
     Dates: start: 20180510
  3. OXYBUTYNIN CHLORIDE. [Concomitant]
     Active Substance: OXYBUTYNIN CHLORIDE
     Route: 048
     Dates: start: 20170220
  4. XERMELO [Suspect]
     Active Substance: TELOTRISTAT ETHYL
     Indication: CARCINOID SYNDROME
     Route: 048
     Dates: start: 201705
  5. FOLIC ACID. [Concomitant]
     Active Substance: FOLIC ACID
     Route: 048
     Dates: start: 20170418
  6. LANREOTIDE AUTOGEL [Suspect]
     Active Substance: LANREOTIDE
     Indication: PRODUCT USED FOR UNKNOWN INDICATION
     Dosage: 120 MG
     Route: 058
     Dates: start: 20140513
  7. OCTREOTIDE ACETATE. [Concomitant]
     Active Substance: OCTREOTIDE ACETATE
     Dates: start: 20170418
  8. XERMELO [Suspect]
     Active Substance: TELOTRISTAT ETHYL
     Route: 048
     Dates: start: 20180314
  9. LORAZEPAM. [Concomitant]
     Active Substance: LORAZEPAM
     Route: 048
     Dates: start: 20161027
  10. VITAMIN D3 [Concomitant]
     Active Substance: CHOLECALCIFEROL
     Route: 048
     Dates: start: 20140204

REACTIONS (4)
  - Serum serotonin increased [Recovering/Resolving]
  - Metastases to lymph nodes [Unknown]
  - Metastases to liver [Unknown]
  - Off label use [Unknown]

NARRATIVE: CASE EVENT DATE: 201805
